FAERS Safety Report 6656377-X (Version None)
Quarter: 2010Q1

REPORT INFORMATION
  Report Type: 
  Country: None (occurrence: None)
  Receive Date: 20100326
  Receipt Date: 20100326
  Transmission Date: 20100710
  Serious: Yes (Hospitalization)
  Sender: FDA-Public Use
  Company Number: None

PATIENT
  Sex: Female
  Weight: 78.2 kg

DRUGS (2)
  1. TEMOZOLOMIDE [Suspect]
     Indication: GLIOBLASTOMA MULTIFORME
     Dosage: 190 MG QD ORAL
     Route: 048
     Dates: start: 20091110
  2. SENNA TABLETS [Concomitant]

REACTIONS (5)
  - ANAEMIA [None]
  - METHAEMOGLOBINAEMIA [None]
  - PAIN [None]
  - PYREXIA [None]
  - SYNCOPE [None]
